FAERS Safety Report 16015787 (Version 1)
Quarter: 2019Q1

REPORT INFORMATION
  Report Type: Spontaneous
  Country: FR (occurrence: FR)
  Receive Date: 20190228
  Receipt Date: 20190228
  Transmission Date: 20190418
  Serious: Yes (Other)
  Sender: FDA-Public Use
  Company Number: FR-TEVA-2019-FR-1016493

PATIENT
  Age: 93 Year
  Sex: Male

DRUGS (2)
  1. PRAVASTATINE SODIQUE [Suspect]
     Active Substance: PRAVASTATIN SODIUM
     Route: 048
     Dates: start: 20140722
  2. KARDEGIC [Suspect]
     Active Substance: ASPIRIN DL-LYSINE
     Route: 048
     Dates: start: 20140722

REACTIONS (3)
  - Dermatitis psoriasiform [Unknown]
  - Toxic skin eruption [Unknown]
  - Drug eruption [Unknown]

NARRATIVE: CASE EVENT DATE: 201408
